FAERS Safety Report 8823057 (Version 2)
Quarter: 2013Q2

REPORT INFORMATION
  Report Type: Report from Study
  Country: US (occurrence: US)
  Receive Date: 20121003
  Receipt Date: 20130508
  Transmission Date: 20140414
  Serious: Yes (Other)
  Sender: FDA-Public Use
  Company Number: US-US-EMD SERONO, INC.-7164520

PATIENT
  Age: 55 Year
  Sex: Female
  Weight: 66 kg

DRUGS (4)
  1. REBIF [Suspect]
     Indication: MULTIPLE SCLEROSIS
     Route: 058
     Dates: start: 20111230
  2. INSULIN [Concomitant]
     Indication: DIABETES MELLITUS
  3. METFORMIN                          /00082702/ [Concomitant]
     Indication: DIABETES MELLITUS
  4. WELLBUTRIN                         /00700501/ [Concomitant]
     Indication: DEPRESSION

REACTIONS (3)
  - Hypoglycaemia [Unknown]
  - Convulsion [Recovered/Resolved]
  - Injection site pain [Not Recovered/Not Resolved]
